FAERS Safety Report 17641477 (Version 1)
Quarter: 2020Q2

REPORT INFORMATION
  Report Type: Spontaneous
  Country: NL (occurrence: NL)
  Receive Date: 20200407
  Receipt Date: 20200407
  Transmission Date: 20200713
  Serious: Yes (Other)
  Sender: FDA-Public Use
  Company Number: NL-ALLERGAN-2014309US

PATIENT
  Sex: Female
  Weight: 60 kg

DRUGS (2)
  1. BIMATOPROST UNK [Suspect]
     Active Substance: BIMATOPROST
     Indication: GLAUCOMA
     Dosage: 1 GTT, QD
     Dates: start: 20200109
  2. LISINOPRIL. [Concomitant]
     Active Substance: LISINOPRIL
     Dosage: TABLET, 5 MG (MILLIGRAM)

REACTIONS (1)
  - Uveitis [Recovering/Resolving]

NARRATIVE: CASE EVENT DATE: 20200218
